FAERS Safety Report 7682234-6 (Version None)
Quarter: 2011Q3

REPORT INFORMATION
  Report Type: 
  Country: None (occurrence: None)
  Receive Date: 20110815
  Receipt Date: 20110810
  Transmission Date: 20111222
  Serious: No
  Sender: FDA-Public Use
  Company Number: US-PFIZER INC-2011184826

PATIENT
  Sex: Female
  Weight: 56.689 kg

DRUGS (4)
  1. TOVIAZ [Suspect]
     Indication: URINARY INCONTINENCE
     Dosage: 8 MG, DAILY
     Route: 048
     Dates: start: 20110101
  2. VALSARTAN [Concomitant]
     Dosage: 80 MG, UNK
     Route: 048
  3. METOPROLOL [Concomitant]
     Dosage: 60 MG, UNK
     Route: 048
  4. SIMVASTATIN [Concomitant]
     Dosage: 20 MG, UNK
     Route: 048

REACTIONS (1)
  - INSOMNIA [None]
